FAERS Safety Report 6315186-1 (Version None)
Quarter: 2009Q3

REPORT INFORMATION
  Report Type: 
  Country: None (occurrence: None)
  Receive Date: 20090817
  Receipt Date: 20090804
  Transmission Date: 20100115
  Serious: Yes (Other)
  Sender: FDA-Public Use
  Company Number: 2009AP002940

PATIENT
  Age: 16 Year
  Sex: Male

DRUGS (3)
  1. RISPERIDONE [Suspect]
     Indication: DRUG USE FOR UNKNOWN INDICATION
     Dosage: .25 MG;TAB;PO;QD; .25 MG;QD PO
     Route: 048
     Dates: start: 20081201
  2. CONCERTA [Suspect]
     Indication: ATTENTION DEFICIT/HYPERACTIVITY DISORDER
     Dosage: 72 MG; PO; 36 MG; PO; 72 MG;
     Route: 048
     Dates: start: 20090401
  3. VALPROATE SODIUM [Concomitant]

REACTIONS (4)
  - EPISTAXIS [None]
  - FEELING ABNORMAL [None]
  - HEADACHE [None]
  - HYPERTENSION [None]
